FAERS Safety Report 13658160 (Version 3)
Quarter: 2017Q3

REPORT INFORMATION
  Report Type: Report from Study
  Country: IT (occurrence: IT)
  Receive Date: 20170616
  Receipt Date: 20170928
  Transmission Date: 20171127
  Serious: Yes (Death, Hospitalization)
  Sender: FDA-Public Use
  Company Number: IT-ROCHE-1950217

PATIENT
  Age: 66 Year
  Sex: Male

DRUGS (14)
  1. RITUXIMAB. [Suspect]
     Active Substance: RITUXIMAB
     Dosage: BEST RESPONSE: PROGRESSIVE DISEASE, 2 CYCLE
     Route: 065
     Dates: start: 20160701, end: 20160728
  2. LENALIDOMIDE [Concomitant]
     Active Substance: LENALIDOMIDE
     Route: 048
     Dates: start: 20170417
  3. CC-122 [Suspect]
     Active Substance: INVESTIGATIONAL PRODUCT
     Dosage: CYCLE 3?22/DEC/2016 TO 26/DEC/2016, 3 MG?27/DEC/2016 TO 28/DEC/2016, 0 MG?29/DEC/2016 TO 02/JAN/2017
     Route: 048
     Dates: start: 20161222, end: 20170117
  4. CC-122 [Suspect]
     Active Substance: INVESTIGATIONAL PRODUCT
     Dosage: CYCLE 4?19/JAN/2017 TO 23/JAN/2017, 3 MG?24/JAN/2017 TO 25/JAN/2017, 0 MG?26/JAN/2017 TO 30/JAN/2017
     Route: 048
     Dates: start: 20170119, end: 20170215
  5. BACTRIM [Concomitant]
     Active Substance: SULFAMETHOXAZOLE\TRIMETHOPRIM
     Dosage: 160 MG + 800 MG (3 IN 1 WEEK)
     Route: 065
  6. RITUXIMAB. [Suspect]
     Active Substance: RITUXIMAB
     Dosage: CYCLE 2: 25/NOV/2016 10:00 TO 14:15, ACTUAL DOSE 630?CYCLE 3: 23/DEC/2016 09:00 TO 13:45, ACTUAL DOS
     Route: 042
     Dates: start: 20161125
  7. RITUXIMAB. [Suspect]
     Active Substance: RITUXIMAB
     Indication: DIFFUSE LARGE B-CELL LYMPHOMA
     Dosage: DOSE STARTED AT 10:00 TO 14:15, RITUXIMAB, ACTUAL DOSE 700
     Route: 042
     Dates: start: 20161104, end: 20161104
  8. RITUXIMAB. [Suspect]
     Active Substance: RITUXIMAB
     Indication: CHEMOTHERAPY
     Dosage: BEST RESPONSE: UNKNOWN, 1 CYCLE
     Route: 065
     Dates: start: 20160109, end: 20160109
  9. RITUXIMAB. [Suspect]
     Active Substance: RITUXIMAB
     Dosage: BEST RESPONSE: PARTIAL RESOPNSE, 5 CYCLE
     Route: 065
     Dates: start: 20160201, end: 20160520
  10. CC-122 [Suspect]
     Active Substance: INVESTIGATIONAL PRODUCT
     Indication: DIFFUSE LARGE B-CELL LYMPHOMA
     Dosage: 3 (5/7D) FORMULATED CAPSULES?CYCLE 1?27/OCT/2016 TO 31/OCT/2016, 3 MG?01/NOV/2016 TO 02/NOV/2016, 0
     Route: 048
     Dates: start: 20161027, end: 20161123
  11. CC-122 [Suspect]
     Active Substance: INVESTIGATIONAL PRODUCT
     Dosage: CYCLE 2?24/NOV/2016 TO 28/NOV/2016, 3MG?29/NOV/2016 TO 30/NOV/2016, 0 MG?01/DEC/2016 TO 05/DEC/2016,
     Route: 048
     Dates: start: 20161124, end: 20161221
  12. LENALIDOMIDE [Suspect]
     Active Substance: LENALIDOMIDE
     Indication: DIFFUSE LARGE B-CELL LYMPHOMA
     Route: 065
  13. SOLDESAM [Concomitant]
     Active Substance: DEXAMETHASONE
     Route: 048
     Dates: start: 20170424
  14. ACYCLOVIR. [Concomitant]
     Active Substance: ACYCLOVIR

REACTIONS (1)
  - Progressive multifocal leukoencephalopathy [Fatal]

NARRATIVE: CASE EVENT DATE: 201705
